FAERS Safety Report 4638326-9 (Version None)
Quarter: 2005Q2

REPORT INFORMATION
  Report Type: 
  Country: None (occurrence: None)
  Receive Date: 20050418
  Receipt Date: 20050329
  Transmission Date: 20051028
  Serious: Yes (Other)
  Sender: FDA-Public Use
  Company Number: US96100586A

PATIENT
  Age: 77 Year
  Sex: Female
  Weight: 53.978 kg

DRUGS (18)
  1. HUMALOG [Suspect]
     Indication: DIABETES MELLITUS
     Dates: start: 19980101
  2. HUMULIN L [Suspect]
     Indication: DIABETES MELLITUS
  3. HUMULIN R [Suspect]
     Indication: DIABETES MELLITUS INSULIN-DEPENDENT
     Dosage: 17 U
  4. HUMULIN U [Suspect]
     Indication: DIABETES MELLITUS INSULIN-DEPENDENT
     Dosage: 12 U
     Dates: end: 19990101
  5. HUMULIN N [Suspect]
     Indication: DIABETES MELLITUS
     Dosage: 10 U/1 AT BEDTIME
     Dates: start: 19890101
  6. HUMULIN-HUMAN INSULIN (RDNA) (HU [Suspect]
     Indication: DIABETES MELLITUS
     Dates: start: 19800101
  7. FORTEO [Suspect]
     Indication: OSTEOPOROSIS
     Dates: start: 20050320
  8. CYMBALTA [Suspect]
     Indication: DEPRESSION
     Dosage: 20MG/1 IN THE EVENING
     Dates: start: 20050322
  9. ILETIN [Suspect]
     Indication: DIABETES MELLITUS
     Dates: start: 19570101, end: 19800101
  10. ZOCOR [Concomitant]
  11. SYNTHROID [Concomitant]
  12. TOFRANIL [Concomitant]
  13. PULMICORT [Concomitant]
  14. ACTONEL [Concomitant]
  15. VITAMIN CAP [Concomitant]
  16. VITAMIN E [Concomitant]
  17. LANTUS [Concomitant]
  18. ATENOLOL [Concomitant]

REACTIONS (12)
  - ANAEMIA [None]
  - CHRONIC OBSTRUCTIVE PULMONARY DISEASE [None]
  - DEPRESSION [None]
  - DIABETES MELLITUS INADEQUATE CONTROL [None]
  - DIABETIC NEUROPATHY [None]
  - FATIGUE [None]
  - FEELING JITTERY [None]
  - INSOMNIA [None]
  - OSTEOPOROSIS [None]
  - RENAL FAILURE CHRONIC [None]
  - SYNCOPE [None]
  - WEIGHT DECREASED [None]
